FAERS Safety Report 9447390 (Version 1)
Quarter: 2013Q3

REPORT INFORMATION
  Report Type: Spontaneous
  Country: US (occurrence: None)
  Receive Date: 20130806
  Receipt Date: 20130806
  Transmission Date: 20140515
  Serious: Yes (Other)
  Sender: FDA-Public Use
  Company Number: B0912542A

PATIENT
  Age: 26 Year
  Sex: Male

DRUGS (1)
  1. SUMATRIPTAN SUCCINATE (FORMULATION UNKNOWN) (GENERIC) (SUMATRIPTAN SUCCINATE) [Suspect]
     Indication: MIGRAINE

REACTIONS (6)
  - Neck pain [None]
  - Musculoskeletal stiffness [None]
  - Migraine [None]
  - Hyperhidrosis [None]
  - Heart rate decreased [None]
  - Autonomic dysreflexia [None]
